FAERS Safety Report 11405555 (Version 2)
Quarter: 2015Q3

REPORT INFORMATION
  Report Type: Spontaneous
  Country: US (occurrence: US)
  Receive Date: 20150821
  Receipt Date: 20150921
  Transmission Date: 20151125
  Serious: No
  Sender: FDA-Public Use
  Company Number: US-PFIZER INC-2015268810

PATIENT
  Age: 71 Year
  Sex: Female
  Weight: 77 kg

DRUGS (3)
  1. LYRICA [Suspect]
     Active Substance: PREGABALIN
     Dosage: 150 MG, 1X/DAY
     Dates: start: 201508
  2. LYRICA [Suspect]
     Active Substance: PREGABALIN
     Dosage: 300 MG, 1X/DAY (AT NIGHT BEDTIME)
  3. LYRICA [Suspect]
     Active Substance: PREGABALIN
     Indication: FIBROMYALGIA
     Dosage: 300 MG, 1X/DAY, (150MG 2 IN THE MORNING)

REACTIONS (7)
  - Drug withdrawal syndrome [Recovered/Resolved]
  - Headache [Not Recovered/Not Resolved]
  - Tremor [Not Recovered/Not Resolved]
  - Pain [Recovered/Resolved]
  - Emotional disorder [Recovered/Resolved]
  - Somnolence [Recovered/Resolved]
  - Feeling jittery [Recovered/Resolved]
